FAERS Safety Report 24691021 (Version 1)
Quarter: 2024Q4

REPORT INFORMATION
  Report Type: Spontaneous
  Country: PT (occurrence: PT)
  Receive Date: 20241203
  Receipt Date: 20241203
  Transmission Date: 20250114
  Serious: Yes (Other)
  Sender: SANDOZ
  Company Number: PT-NOVPHSZ-PHHY2019PT015364

PATIENT
  Age: 46 Year
  Sex: Female

DRUGS (3)
  1. ACEMETACIN [Suspect]
     Active Substance: ACEMETACIN
     Indication: Lumbar hernia
     Dosage: 60 MG, BID
     Route: 065
     Dates: start: 201311, end: 201402
  2. METAMIZOLE SODIUM [Suspect]
     Active Substance: METAMIZOLE SODIUM
     Indication: Lumbar hernia
     Dosage: 575 MG, BID
     Route: 065
     Dates: start: 201309
  3. ACETAMINOPHEN\TRAMADOL [Suspect]
     Active Substance: ACETAMINOPHEN\TRAMADOL
     Indication: Lumbar hernia
     Dosage: 37.5 MG AND 325 MG, Q8H
     Route: 065
     Dates: start: 201309

REACTIONS (9)
  - Hepatitis acute [Recovered/Resolved]
  - Choluria [Recovered/Resolved]
  - Pruritus [Recovered/Resolved]
  - Necrosis [Recovered/Resolved]
  - Jaundice [Recovered/Resolved]
  - Hepatitis cholestatic [Recovered/Resolved]
  - Hepatic failure [Recovered/Resolved]
  - Deficiency of bile secretion [Recovered/Resolved]
  - Atelectasis [Recovered/Resolved]

NARRATIVE: CASE EVENT DATE: 20140201
